FAERS Safety Report 8389054-8 (Version None)
Quarter: 2012Q2

REPORT INFORMATION
  Report Type: 
  Country: None (occurrence: None)
  Receive Date: 20120528
  Receipt Date: 20120515
  Transmission Date: 20120825
  Serious: Yes (Hospitalization, Disabling, Other)
  Sender: FDA-Public Use
  Company Number: PHHY2012BR044467

PATIENT
  Sex: Female

DRUGS (11)
  1. METFORMIN HCL [Concomitant]
     Indication: DIABETES MELLITUS
     Dosage: 850 MG,1 TABLET AFTER THE LUNCH AND 1 TABLET AFTER THE DINNER
  2. GLYBURIDE [Concomitant]
     Indication: DIABETES MELLITUS
     Dosage: 5 MG, 1 TABLET AFTER THE LUNCH AND 1 TABLET AFTER THE DINNER
  3. FUROSEMIDE [Concomitant]
     Indication: DIURETIC THERAPY
     Dosage: UNK UKN, UNK
  4. SIMVASTATIN [Concomitant]
     Indication: BLOOD TRIGLYCERIDES
     Dosage: 20 MG, 1 TABLET AT NIGHT
  5. RANITIDINE [Concomitant]
     Indication: ABDOMINAL DISCOMFORT
     Dosage: 5 ML IN THE MORNING AND 5 ML AT NIGHT
  6. DIAZEPAM [Concomitant]
     Indication: SLEEP DISORDER
     Dosage: 2 TABLETS AT NIGH
  7. LOSARTAN POTASSIUM [Concomitant]
     Indication: BLOOD PRESSURE
     Dosage: 50 MG,2 TABLETS A DAY
  8. ALDACTONE [Concomitant]
     Indication: DIURETIC THERAPY
     Dosage: 1 TABLET A DAY
  9. FORMOTEROL FUMARATE [Suspect]
     Indication: EMPHYSEMA
     Dosage: 1 DF (1 APPLICATION IN THE MORNING)
     Dates: start: 20120301
  10. HYDROCHLOROTHIAZIDE [Concomitant]
     Indication: DIURETIC THERAPY
     Dosage: 1 TABLET A DAY
  11. LEVOTHYROXINE SODIUM [Concomitant]
     Indication: THYROID DISORDER
     Dosage: 1 TABLET IN FASTING IN THE MORNING

REACTIONS (7)
  - CEREBROVASCULAR ACCIDENT [None]
  - GAIT DISTURBANCE [None]
  - HEADACHE [None]
  - MOVEMENT DISORDER [None]
  - FEELING ABNORMAL [None]
  - VIITH NERVE PARALYSIS [None]
  - DYSPHAGIA [None]
